FAERS Safety Report 14188618 (Version 2)
Quarter: 2017Q4

REPORT INFORMATION
  Report Type: Report from Study
  Country: US (occurrence: US)
  Receive Date: 20171114
  Receipt Date: 20171227
  Transmission Date: 20180321
  Serious: Yes (Death)
  Sender: FDA-Public Use
  Company Number: US-ACTELION-A-US2017-162099

PATIENT
  Age: 64 Year
  Sex: Female

DRUGS (11)
  1. ALLEGRA [Concomitant]
     Active Substance: FEXOFENADINE HYDROCHLORIDE
     Dosage: UNK, QD
     Route: 048
     Dates: start: 20170328
  2. NASOCORT [Concomitant]
     Active Substance: BUDESONIDE
     Dosage: 55 MCG, UNK
     Route: 045
     Dates: start: 20170328
  3. CALCIUM [Concomitant]
     Active Substance: CALCIUM
     Dosage: UNK, BID
     Dates: start: 20130711
  4. SILDENAFIL. [Concomitant]
     Active Substance: SILDENAFIL
     Dosage: 20 MG, TID
     Route: 048
     Dates: start: 20170420
  5. OPSUMIT [Suspect]
     Active Substance: MACITENTAN
     Indication: PULMONARY HYPERTENSION
     Dosage: 10 MG, QD
     Route: 048
     Dates: start: 20160906, end: 20171016
  6. SIMVASTATIN. [Concomitant]
     Active Substance: SIMVASTATIN
     Dosage: 20 MG, QD
     Route: 048
     Dates: start: 20170328
  7. VITAMIN C [Concomitant]
     Active Substance: ASCORBIC ACID
     Dosage: 500 MG, BID
     Route: 048
     Dates: start: 20160906
  8. VITAMIN D [Concomitant]
     Active Substance: CHOLECALCIFEROL
     Dosage: 5000 U, QD
     Route: 048
     Dates: start: 20130711
  9. FOLIC ACID. [Concomitant]
     Active Substance: FOLIC ACID
     Dosage: 1 MG, QD
     Route: 048
     Dates: start: 20110105
  10. CITALOPRAM [Concomitant]
     Active Substance: CITALOPRAM HYDROBROMIDE
     Dosage: 10 MG, QD
     Route: 048
     Dates: start: 20130711
  11. INSULIN [Concomitant]
     Active Substance: INSULIN NOS

REACTIONS (13)
  - Dyspnoea exertional [Unknown]
  - Fatigue [Unknown]
  - Gastrointestinal disorder [Unknown]
  - Flushing [Unknown]
  - Dyspnoea [Unknown]
  - Exercise tolerance decreased [Unknown]
  - Feeling abnormal [Unknown]
  - Oedema [Unknown]
  - Death [Fatal]
  - Oxygen consumption increased [Unknown]
  - Headache [Unknown]
  - Cough [Unknown]
  - Pulmonary hypertension [Unknown]

NARRATIVE: CASE EVENT DATE: 20170107
